FAERS Safety Report 10543697 (Version 7)
Quarter: 2018Q2

REPORT INFORMATION
  Report Type: Report from Study
  Country: JP (occurrence: JP)
  Receive Date: 20141027
  Receipt Date: 20180425
  Transmission Date: 20180711
  Serious: Yes (Hospitalization, Other)
  Sender: FDA-Public Use
  Company Number: PHHY2014JP138497

PATIENT
  Age: 12 Year
  Sex: Female

DRUGS (20)
  1. TOBI [Suspect]
     Active Substance: TOBRAMYCIN
     Indication: CYSTIC FIBROSIS
     Dosage: 300 MG, BID
     Route: 055
     Dates: start: 20131104, end: 20131201
  2. TRANEXAMIC [Concomitant]
     Indication: PRODUCT USED FOR UNKNOWN INDICATION
     Dosage: 750 MG, UNK
     Route: 048
     Dates: start: 20150612, end: 20150806
  3. TOBI [Suspect]
     Active Substance: TOBRAMYCIN
     Dosage: 300 MG, BID
     Route: 055
     Dates: start: 20140225, end: 20140324
  4. TOBI [Suspect]
     Active Substance: TOBRAMYCIN
     Dosage: 300 MG, BID
     Route: 055
     Dates: start: 20150106, end: 20150202
  5. LIPACREON [Concomitant]
     Active Substance: PANCRELIPASE
     Indication: CYSTIC FIBROSIS
     Dosage: 600 MG, UNK
     Route: 048
  6. TOBI [Suspect]
     Active Substance: TOBRAMYCIN
     Dosage: 300 MG, BID
     Route: 055
     Dates: start: 20150303, end: 20150305
  7. PULMOZYME [Concomitant]
     Active Substance: DORNASE ALFA
     Indication: CYSTIC FIBROSIS
     Dosage: 5 ML, UNK
     Route: 055
  8. KLARICID [Concomitant]
     Active Substance: CLARITHROMYCIN
     Indication: CYSTIC FIBROSIS
     Dosage: 300 MG, UNK
     Route: 048
  9. TOBI [Suspect]
     Active Substance: TOBRAMYCIN
     Indication: PSEUDOMONAS INFECTION
     Dosage: 300 MG, BID
     Route: 055
     Dates: start: 20131231, end: 20140127
  10. TOBI [Suspect]
     Active Substance: TOBRAMYCIN
     Dosage: 300 MG, BID
     Route: 055
     Dates: start: 20140701, end: 20141208
  11. MUCODYNE [Concomitant]
     Active Substance: CARBOCYSTEINE
     Indication: CYSTIC FIBROSIS
     Dosage: 1000 MG, UNK
     Route: 048
  12. ASTOMIN [Concomitant]
     Active Substance: DIMEMORFAN
     Indication: CYSTIC FIBROSIS
     Dosage: 20 MG, UNK
     Route: 048
     Dates: end: 20140619
  13. TOBI [Suspect]
     Active Substance: TOBRAMYCIN
     Dosage: 300 MG, BID
     Route: 055
     Dates: start: 20150623
  14. INTAL [Concomitant]
     Active Substance: CROMOLYN SODIUM
     Indication: CYSTIC FIBROSIS
     Dosage: 6 ML, UNK
     Route: 055
  15. TAKEPRON [Concomitant]
     Active Substance: LANSOPRAZOLE
     Indication: PRODUCT USED FOR UNKNOWN INDICATION
     Dosage: 15 MG, UNK
     Route: 048
  16. BISOLVON [Concomitant]
     Active Substance: BROMHEXINE HYDROCHLORIDE
     Indication: CYSTIC FIBROSIS
     Dosage: 3 ML, UNK
     Route: 055
  17. TOBI [Suspect]
     Active Substance: TOBRAMYCIN
     Dosage: 300 MG, BID
     Route: 055
     Dates: start: 20140513, end: 20140527
  18. TOBI [Suspect]
     Active Substance: TOBRAMYCIN
     Dosage: 300 MG, BID
     Route: 055
     Dates: start: 20150429, end: 20150522
  19. SINGULAIR [Concomitant]
     Active Substance: MONTELUKAST SODIUM
     Indication: CYSTIC FIBROSIS
     Dosage: 5 MG, UNK
     Route: 048
  20. URSO [Concomitant]
     Active Substance: URSODIOL
     Indication: PRODUCT USED FOR UNKNOWN INDICATION
     Dosage: 100 MG, UNK
     Route: 048

REACTIONS (8)
  - Melaena [Unknown]
  - Haematemesis [Recovered/Resolved]
  - Anaemia [Recovering/Resolving]
  - Anaemia [Recovered/Resolved]
  - Oropharyngeal discomfort [Recovered/Resolved]
  - Haematemesis [Recovered/Resolved]
  - Faeces discoloured [Recovering/Resolving]
  - Haematemesis [Recovered/Resolved]

NARRATIVE: CASE EVENT DATE: 20140430
